FAERS Safety Report 22272647 (Version 1)
Quarter: 2023Q2

REPORT INFORMATION
  Report Type: Report from Study
  Country: CA (occurrence: CA)
  Receive Date: 20230502
  Receipt Date: 20230502
  Transmission Date: 20230722
  Serious: Yes (Hospitalization, Other)
  Sender: FDA-Public Use
  Company Number: CA-JNJFOC-20230458678

PATIENT
  Age: 41 Year
  Sex: Male

DRUGS (1)
  1. STELARA [Suspect]
     Active Substance: USTEKINUMAB
     Indication: Product used for unknown indication
     Route: 058
     Dates: start: 20180323

REACTIONS (8)
  - Post procedural infection [Recovered/Resolved]
  - Surgery [Unknown]
  - Intestinal strangulation [Recovered/Resolved with Sequelae]
  - Stoma prolapse [Not Recovered/Not Resolved]
  - Hernia [Unknown]
  - Amnesia [Recovered/Resolved]
  - Pain [Unknown]
  - Nausea [Not Recovered/Not Resolved]

NARRATIVE: CASE EVENT DATE: 20230101
